FAERS Safety Report 17616866 (Version 1)
Quarter: 2020Q2

REPORT INFORMATION
  Report Type: Spontaneous
  Country: CA (occurrence: CA)
  Receive Date: 20200402
  Receipt Date: 20200402
  Transmission Date: 20200713
  Serious: Yes (Other)
  Sender: FDA-Public Use
  Company Number: CA-TEVA-2020-CA-1216984

PATIENT
  Age: 63 Year
  Sex: Female
  Weight: 74 kg

DRUGS (9)
  1. METFORMIN [Concomitant]
     Active Substance: METFORMIN HYDROCHLORIDE
  2. CALCIUM [Concomitant]
     Active Substance: CALCIUM
  3. BUPROPION. [Concomitant]
     Active Substance: BUPROPION
  4. VITAMIN D3 [Concomitant]
     Active Substance: CHOLECALCIFEROL
  5. BISOPROLOL [Concomitant]
     Active Substance: BISOPROLOL
  6. ENALAPRILAT. [Concomitant]
     Active Substance: ENALAPRILAT
  7. ATORVASTATIN CALCIUM. [Suspect]
     Active Substance: ATORVASTATIN CALCIUM
     Indication: BLOOD CHOLESTEROL
     Dosage: 1 DOSAGE FORMS DAILY;
     Route: 048
  8. INSULIN (HUMAN)/INSULIN ISOPHANE HUMAN BIOSYNTHETIC [Concomitant]
     Active Substance: INSULIN HUMAN
  9. NOVORAPID [Concomitant]
     Active Substance: INSULIN ASPART

REACTIONS (4)
  - Agitation [Recovered/Resolved]
  - Insomnia [Recovered/Resolved]
  - Dyskinesia [Recovered/Resolved]
  - Disturbance in attention [Recovered/Resolved]
